FAERS Safety Report 7161808-5 (Version None)
Quarter: 2010Q4

REPORT INFORMATION
  Report Type: 
  Country: None (occurrence: None)
  Receive Date: 20101201
  Receipt Date: 20101124
  Transmission Date: 20110411
  Serious: Yes (Hospitalization, Other)
  Sender: FDA-Public Use
  Company Number: 2009-200464-NL

PATIENT
  Age: 30 Year
  Sex: Female
  Weight: 72.5755 kg

DRUGS (9)
  1. NUVARING [Suspect]
     Indication: CONTRACEPTION
     Dosage: 1 DF;
     Dates: start: 20060101, end: 20080301
  2. NUVARING [Suspect]
     Indication: MENSTRUATION IRREGULAR
     Dosage: 1 DF;
     Dates: start: 20060101, end: 20080301
  3. XANAX [Concomitant]
  4. ADVIL [Concomitant]
  5. SKELAXIN [Concomitant]
  6. AMOXICILLIN [Concomitant]
  7. BACLOFEN [Concomitant]
  8. LEXAPRO [Concomitant]
  9. NORCO [Concomitant]

REACTIONS (11)
  - ABDOMINAL DISTENSION [None]
  - ACUTE SINUSITIS [None]
  - ANXIETY [None]
  - BACK PAIN [None]
  - FACE INJURY [None]
  - FLATULENCE [None]
  - HYPOKALAEMIA [None]
  - PHARYNGITIS STREPTOCOCCAL [None]
  - PLEURAL EFFUSION [None]
  - PULMONARY EMBOLISM [None]
  - SYNCOPE [None]
